FAERS Safety Report 7774788-6 (Version None)
Quarter: 2011Q3

REPORT INFORMATION
  Report Type: 
  Country: None (occurrence: None)
  Receive Date: 20110923
  Receipt Date: 20110916
  Transmission Date: 20111222
  Serious: Yes (Hospitalization)
  Sender: FDA-Public Use
  Company Number: US-ROCHE-804135

PATIENT
  Sex: Female
  Weight: 65.7 kg

DRUGS (10)
  1. TEMODAR [Suspect]
     Dosage: ON DAY 1-7 EVERY 4 WEEKS1
     Route: 048
  2. GUAIFENESIN [Concomitant]
  3. AVASTIN [Suspect]
     Dosage: DOSE AND ROUTE WAS NOT REPORTED.
     Route: 065
  4. CRESTOR [Concomitant]
  5. DECADRON [Concomitant]
  6. LANSOPRAZOLE [Concomitant]
  7. DETROL [Concomitant]
  8. ZOFRAN [Concomitant]
  9. LITHIUM [Suspect]
     Route: 048
  10. KEPPRA [Concomitant]

REACTIONS (5)
  - LETHARGY [None]
  - GAIT DISTURBANCE [None]
  - FATIGUE [None]
  - DYSARTHRIA [None]
  - SALIVARY HYPERSECRETION [None]
